FAERS Safety Report 8264552-6 (Version None)
Quarter: 2012Q2

REPORT INFORMATION
  Report Type: 
  Country: None (occurrence: None)
  Receive Date: 20120406
  Receipt Date: 20120329
  Transmission Date: 20120825
  Serious: Yes (Other)
  Sender: FDA-Public Use
  Company Number: ES-UCBSA-053372

PATIENT
  Age: 18 Year
  Sex: Female
  Weight: 53 kg

DRUGS (3)
  1. KEPPRA [Suspect]
     Route: 048
     Dates: start: 20120309, end: 20120301
  2. KEPPRA [Suspect]
     Route: 048
     Dates: start: 20110929
  3. NO CONCOMITANT MEDICATION [Concomitant]

REACTIONS (2)
  - DIZZINESS [None]
  - ANGIOEDEMA [None]
